FAERS Safety Report 13162203 (Version 1)
Quarter: 2017Q1

REPORT INFORMATION
  Report Type: Spontaneous
  Country: None (occurrence: US)
  Receive Date: 20170126
  Receipt Date: 20170126
  Transmission Date: 20170428
  Serious: No
  Sender: FDA-Public Use
  Company Number: None

PATIENT
  Age: 52 Year
  Sex: Female
  Weight: 54.93 kg

DRUGS (1)
  1. AFINITOR [Suspect]
     Active Substance: EVEROLIMUS
     Indication: MALIGNANT NEOPLASM OF RENAL PELVIS
     Dosage: 10 MG DAILY FOR 28 DAYS PO
     Route: 048
     Dates: start: 20161129

REACTIONS (2)
  - Abdominal discomfort [None]
  - Tongue ulceration [None]
